FAERS Safety Report 4439282-9 (Version None)
Quarter: 2004Q3

REPORT INFORMATION
  Report Type: 
  Country: None (occurrence: None)
  Receive Date: 20040831
  Receipt Date: 20040818
  Transmission Date: 20050211
  Serious: Yes (Other)
  Sender: FDA-Public Use
  Company Number: 2004-08-1231

PATIENT
  Age: 4 Year
  Sex: Male

DRUGS (1)
  1. CLARITIN [Suspect]
     Indication: URTICARIA
     Dosage: ONE TSP QD ORAL
     Route: 048
     Dates: start: 20040816, end: 20040817

REACTIONS (2)
  - HALLUCINATION, VISUAL [None]
  - XANTHOPSIA [None]
